FAERS Safety Report 22746361 (Version 3)
Quarter: 2023Q4

REPORT INFORMATION
  Report Type: Spontaneous
  Country: US (occurrence: US)
  Receive Date: 20230725
  Receipt Date: 20231002
  Transmission Date: 20240109
  Serious: No
  Sender: FDA-Public Use
  Company Number: US-PFIZER INC-202300255872

PATIENT
  Age: 15 Year
  Sex: Male
  Weight: 45.36 kg

DRUGS (2)
  1. GENOTROPIN [Suspect]
     Active Substance: SOMATROPIN
     Dosage: UNK
  2. FLUOXETINE [Concomitant]
     Active Substance: FLUOXETINE HYDROCHLORIDE
     Dosage: UNK

REACTIONS (2)
  - Device information output issue [Unknown]
  - Device use issue [Unknown]
